FAERS Safety Report 16772109 (Version 1)
Quarter: 2019Q3

REPORT INFORMATION
  Report Type: Report from Study
  Country: US (occurrence: US)
  Receive Date: 20190904
  Receipt Date: 20190904
  Transmission Date: 20191005
  Serious: No
  Sender: FDA-Public Use
  Company Number: US-EMD SERONO-9092796

PATIENT
  Sex: Female

DRUGS (2)
  1. MAVENCLAD [Suspect]
     Active Substance: CLADRIBINE
     Indication: MULTIPLE SCLEROSIS
     Dosage: FIRST WEEK THERAPY: ONE TIME DAILY
     Route: 048
     Dates: start: 20190419
  2. MAVENCLAD [Suspect]
     Active Substance: CLADRIBINE
     Dosage: SECOND WEEK THERAPY SCHEDULED WITH A TOTAL OF 6 TABLETS (TWO TABLETS ON DAY 1 AND 1 TABLET ON OTHER
     Route: 048
     Dates: start: 20190517

REACTIONS (4)
  - Fatigue [Unknown]
  - Hypertension [Unknown]
  - Somnolence [Unknown]
  - Dizziness [Unknown]
